FAERS Safety Report 22836383 (Version 2)
Quarter: 2024Q1

REPORT INFORMATION
  Report Type: Other
  Country: AU (occurrence: AU)
  Receive Date: 20230818
  Receipt Date: 20240227
  Transmission Date: 20240410
  Serious: Yes (Hospitalization)
  Sender: FDA-Public Use
  Company Number: AU-TOLMAR, INC.-23AU042309

PATIENT
  Age: 65 Year
  Sex: Male

DRUGS (2)
  1. ELIGARD [Suspect]
     Active Substance: LEUPROLIDE ACETATE
     Indication: Prostate cancer
     Dosage: 22.5 MILLIGRAM, Q 3 MONTH
  2. ELIGARD [Suspect]
     Active Substance: LEUPROLIDE ACETATE
     Indication: Prostate cancer
     Dosage: UNK

REACTIONS (4)
  - Fall [Unknown]
  - Rib fracture [Unknown]
  - Orthostatic hypotension [Unknown]
  - Prostatic specific antigen increased [Unknown]

NARRATIVE: CASE EVENT DATE: 20230701
